FAERS Safety Report 15228430 (Version 1)
Quarter: 2018Q3

REPORT INFORMATION
  Report Type: Spontaneous
  Country: US (occurrence: US)
  Receive Date: 20180706
  Receipt Date: 20180706
  Transmission Date: 20181010
  Serious: Yes (Other)
  Sender: FDA-Public Use
  Company Number: None

PATIENT
  Age: 57 Year
  Sex: Female
  Weight: 78.75 kg

DRUGS (3)
  1. IBUPROFEN. [Concomitant]
     Active Substance: IBUPROFEN
  2. BOTOX [Suspect]
     Active Substance: ONABOTULINUMTOXINA
     Indication: MIGRAINE
     Dosage: ?          QUANTITY:27 INJECTION(S);OTHER FREQUENCY:EVERY 3 MONTHS;?
     Route: 058
     Dates: start: 20180531, end: 20180531
  3. IMITREX [Concomitant]
     Active Substance: SUMATRIPTAN SUCCINATE

REACTIONS (4)
  - Skin mass [None]
  - Pain [None]
  - Eyelid oedema [None]
  - Eyelid ptosis [None]

NARRATIVE: CASE EVENT DATE: 20180531
